FAERS Safety Report 8572665 (Version 3)
Quarter: 2012Q4

REPORT INFORMATION
  Report Type: Report from Study
  Country: JP (occurrence: JP)
  Receive Date: 20120522
  Receipt Date: 20121127
  Transmission Date: 20130627
  Serious: Yes (Other)
  Sender: FDA-Public Use
  Company Number: JP-VERTEX PHARMACEUTICAL INC.-AE-2012-007249

PATIENT
  Age: 64 Year
  Sex: Male

DRUGS (20)
  1. VX-950 [Suspect]
     Indication: HEPATITIS C
     Dosage: 2250 mg, qd
     Route: 048
     Dates: start: 20120208, end: 20120214
  2. VX-950 (TELAPREVIR) [Suspect]
     Dosage: 1500 UNK, UNK
     Route: 048
     Dates: start: 20120215, end: 20120418
  3. PEGINTRON                          /01543001/ [Suspect]
     Indication: CHRONIC HEPATITIS C
     Dosage: 1.5 ?g/kg, qw
     Route: 051
     Dates: start: 20120208, end: 20120215
  4. PEGINTRON                          /01543001/ [Suspect]
     Dosage: 0.9 ?g/kg, qw
     Route: 051
     Dates: start: 20120215, end: 20120222
  5. PEGINTRON                          /01543001/ [Suspect]
     Dosage: 0.75 ?g/kg, qw
     Route: 051
     Dates: start: 20120229, end: 20120229
  6. PEGINTRON                          /01543001/ [Suspect]
     Dosage: 0.9 ?g/kg, qw
     Route: 051
     Dates: start: 20120308, end: 20120315
  7. PEGINTRON                          /01543001/ [Suspect]
     Dosage: 1.5 ?g/kg, qw
     Route: 051
     Dates: start: 20120322
  8. RIBAVIRIN [Suspect]
     Indication: HEPATITIS C
     Dosage: 600 mg, qd
     Route: 048
     Dates: start: 20120208, end: 20120228
  9. RIBAVIRIN [Suspect]
     Dosage: 600 mg, qd
     Route: 048
     Dates: start: 20120208, end: 20120307
  10. RIBAVIRIN [Suspect]
     Dosage: 400 mg, qd
     Route: 048
     Dates: start: 20120229, end: 20120404
  11. RIBAVIRIN [Suspect]
     Dosage: 400 mg, qd
     Route: 048
     Dates: start: 20120308, end: 20120404
  12. RIBAVIRIN [Suspect]
     Dosage: 200 mg, qd
     Route: 048
     Dates: start: 20120405, end: 20120411
  13. RIBAVIRIN [Suspect]
     Dosage: 200 mg, qd
     Route: 048
     Dates: start: 20120510, end: 20120515
  14. RIBAVIRIN [Suspect]
     Dosage: 400 mg, qd
     Route: 048
     Dates: start: 20120516, end: 20120725
  15. LORFENAMIN [Concomitant]
     Route: 048
     Dates: start: 20120208
  16. LORFENAMIN [Concomitant]
     Route: 048
     Dates: start: 20120208
  17. REBAMIPIDE [Concomitant]
     Route: 048
     Dates: start: 20120208
  18. REBAMIPIDE [Concomitant]
     Route: 048
     Dates: start: 20120208
  19. ZYLORIC [Concomitant]
     Route: 048
     Dates: start: 20120215
  20. PRIMPERAN [Concomitant]
     Route: 048
     Dates: start: 20120216

REACTIONS (9)
  - Anaemia [Recovered/Resolved]
  - Pyrexia [None]
  - Rash [None]
  - Pruritus generalised [None]
  - Platelet count decreased [None]
  - Blood creatinine increased [None]
  - Hyperuricaemia [None]
  - White blood cell count decreased [None]
  - Vomiting [None]
